FAERS Safety Report 6483647-0 (Version None)
Quarter: 2009Q4

REPORT INFORMATION
  Report Type: 
  Country: None (occurrence: None)
  Receive Date: 20091209
  Receipt Date: 20091130
  Transmission Date: 20100525
  Serious: Yes (Hospitalization)
  Sender: FDA-Public Use
  Company Number: PHHY2009FR51035

PATIENT
  Sex: Female
  Weight: 101 kg

DRUGS (6)
  1. ACLASTA [Suspect]
     Indication: OSTEOPOROSIS
     Dosage: UNK
     Dates: start: 20091014
  2. PRAVASTATIN [Concomitant]
  3. FUROSEMIDE [Concomitant]
  4. TRIVASTAL [Concomitant]
  5. METFORMIN HCL [Concomitant]
  6. GLICLAZIDE [Concomitant]

REACTIONS (5)
  - DIABETIC COMPLICATION [None]
  - DYSPNOEA [None]
  - INFLUENZA LIKE ILLNESS [None]
  - LUNG DISORDER [None]
  - PYREXIA [None]
